FAERS Safety Report 4817704-9 (Version None)
Quarter: 2005Q4

REPORT INFORMATION
  Report Type: 
  Country: None (occurrence: None)
  Receive Date: 20051101
  Receipt Date: 20051101
  Transmission Date: 20060501
  Serious: Yes (Hospitalization)
  Sender: FDA-Public Use
  Company Number: None

PATIENT
  Sex: Male
  Weight: 51.4379 kg

DRUGS (9)
  1. GEMCITABINE [Suspect]
     Indication: LARYNGEAL CANCER RECURRENT
     Dosage: 1000 MG/M2 IV
     Route: 042
     Dates: start: 20051017
  2. DOXORUBICIN [Suspect]
     Dosage: 25 MG/M2 IV
     Route: 042
     Dates: start: 20051024
  3. OSMOLITE [Concomitant]
  4. PROTONIX [Concomitant]
  5. OXAZEPAM [Concomitant]
  6. FENTANYL [Concomitant]
  7. SENNA [Concomitant]
  8. COLACE [Concomitant]
  9. OXYCODONE [Concomitant]

REACTIONS (2)
  - LOBAR PNEUMONIA [None]
  - RESPIRATORY TRACT CONGESTION [None]
